FAERS Safety Report 4644740-8 (Version None)
Quarter: 2005Q2

REPORT INFORMATION
  Report Type: 
  Country: None (occurrence: None)
  Receive Date: 20050422
  Receipt Date: 20050420
  Transmission Date: 20051028
  Serious: Yes (Other)
  Sender: FDA-Public Use
  Company Number: THQ2005A00363

PATIENT
  Age: 68 Year

DRUGS (4)
  1. LANSOPRAZOLE [Suspect]
     Indication: GASTROOESOPHAGEAL REFLUX DISEASE
     Dosage: 30 MG (30 MG, 1 IN 1 D)
     Route: 048
     Dates: start: 20050318, end: 20050323
  2. IRBESARTAN [Concomitant]
  3. LACIDIPINE [Concomitant]
  4. AMOXIL (AMOXICILLIN SODIUM) [Concomitant]

REACTIONS (2)
  - RETINAL HAEMORRHAGE [None]
  - RETINAL VEIN OCCLUSION [None]
